FAERS Safety Report 16445019 (Version 1)
Quarter: 2019Q2

REPORT INFORMATION
  Report Type: Spontaneous
  Country: GB (occurrence: GB)
  Receive Date: 20190618
  Receipt Date: 20190618
  Transmission Date: 20190711
  Serious: Yes (Hospitalization)
  Sender: FDA-Public Use
  Company Number: GB-TEVA-2019-GB-1063990

PATIENT
  Age: 63 Year
  Sex: Female
  Weight: 87.4 kg

DRUGS (8)
  1. DIAZEPAM. [Suspect]
     Active Substance: DIAZEPAM
     Route: 048
     Dates: start: 20180311
  2. TEMAZEPAM. [Suspect]
     Active Substance: TEMAZEPAM
     Dosage: 20-40MG ONCE NIGHTLY
     Route: 048
     Dates: start: 20180415
  3. SERETIDE [Concomitant]
     Active Substance: FLUTICASONE PROPIONATE\SALMETEROL XINAFOATE
  4. SALBUTAMOL [Concomitant]
     Active Substance: ALBUTEROL
  5. CASSIA [Concomitant]
  6. ZOMORPH [Suspect]
     Active Substance: MORPHINE SULFATE
     Route: 048
     Dates: start: 20180312, end: 20190509
  7. SEVREDOL [Suspect]
     Active Substance: MORPHINE
     Route: 048
     Dates: start: 20180312, end: 20190509
  8. LACTULOSE. [Concomitant]
     Active Substance: LACTULOSE

REACTIONS (2)
  - Toxicity to various agents [Not Recovered/Not Resolved]
  - Somnolence [Unknown]

NARRATIVE: CASE EVENT DATE: 20190508
